FAERS Safety Report 20357268 (Version 1)
Quarter: 2022Q1

REPORT INFORMATION
  Report Type: Spontaneous
  Country: US (occurrence: None)
  Receive Date: 20220120
  Receipt Date: 20220120
  Transmission Date: 20220423
  Serious: Yes (Death)
  Sender: FDA-Public Use
  Company Number: None

PATIENT
  Age: 65 Year
  Sex: Female

DRUGS (1)
  1. PIQRAY [Suspect]
     Active Substance: ALPELISIB
     Dosage: FREQUENCY : DAILY;?
     Route: 048
     Dates: start: 20211001, end: 20220118

REACTIONS (1)
  - Death [None]

NARRATIVE: CASE EVENT DATE: 20220118
